FAERS Safety Report 5688251-X (Version None)
Quarter: 2008Q1

REPORT INFORMATION
  Report Type: 
  Country: None (occurrence: None)
  Receive Date: 20080331
  Receipt Date: 20080321
  Transmission Date: 20080703
  Serious: Yes (Other)
  Sender: FDA-Public Use
  Company Number: US-JNJFOC-20080300090

PATIENT
  Sex: Female
  Weight: 78.47 kg

DRUGS (11)
  1. REMICADE [Suspect]
     Route: 042
  2. REMICADE [Suspect]
     Indication: PSORIATIC ARTHROPATHY
     Route: 042
  3. FLOVENT [Concomitant]
     Route: 055
  4. OMEPRAZOLE [Concomitant]
     Route: 048
  5. ASPIRIN [Concomitant]
     Route: 048
  6. ATACAND [Concomitant]
  7. NOVOLOG [Concomitant]
  8. LASIX [Concomitant]
  9. TRIAMCINOLONE [Concomitant]
  10. CENTRUM SILVER [Concomitant]
  11. IRON [Concomitant]

REACTIONS (6)
  - BACK PAIN [None]
  - DIZZINESS [None]
  - DYSPNOEA [None]
  - FEELING HOT [None]
  - INFUSION RELATED REACTION [None]
  - URINARY INCONTINENCE [None]
